FAERS Safety Report 21714496 (Version 1)
Quarter: 2022Q4

REPORT INFORMATION
  Report Type: Report from Study
  Country: US (occurrence: US)
  Receive Date: 20221212
  Receipt Date: 20221212
  Transmission Date: 20230112
  Serious: No
  Sender: FDA-Public Use
  Company Number: US-ABBVIE-22K-163-4476379-00

PATIENT
  Sex: Male

DRUGS (5)
  1. SKYRIZI [Suspect]
     Active Substance: RISANKIZUMAB-RZAA
     Indication: Psoriatic arthropathy
     Dosage: AT WEEK 4 THEN EVERY 12 WEEKS?150 MILLIGRAM
     Route: 058
     Dates: start: 20220505
  2. SKYRIZI [Suspect]
     Active Substance: RISANKIZUMAB-RZAA
     Indication: Psoriatic arthropathy
  3. Pfizer/BioNTech [Concomitant]
     Indication: COVID-19 immunisation
     Dosage: TIME INTERVAL: TOTAL: 1ST DOSE
     Route: 030
  4. Pfizer/BioNTech [Concomitant]
     Indication: COVID-19 immunisation
     Dosage: TIME INTERVAL: TOTAL: 2ND DOSE
     Route: 030
  5. Pfizer/BioNTech [Concomitant]
     Indication: COVID-19 immunisation
     Dosage: TIME INTERVAL: TOTAL: BOOSTER DOSE
     Route: 030

REACTIONS (11)
  - Joint swelling [Not Recovered/Not Resolved]
  - Sinus congestion [Recovering/Resolving]
  - Joint stiffness [Not Recovered/Not Resolved]
  - Hypoaesthesia [Not Recovered/Not Resolved]
  - Arthralgia [Not Recovered/Not Resolved]
  - Peripheral swelling [Recovered/Resolved]
  - Respiratory tract congestion [Recovering/Resolving]
  - Pain in extremity [Unknown]
  - Sinusitis [Recovered/Resolved]
  - Drug ineffective [Unknown]
  - Fatigue [Not Recovered/Not Resolved]

NARRATIVE: CASE EVENT DATE: 20220101
